FAERS Safety Report 5212996-9 (Version None)
Quarter: 2007Q1

REPORT INFORMATION
  Report Type: 
  Country: None (occurrence: None)
  Receive Date: 20070112
  Receipt Date: 20070102
  Transmission Date: 20070707
  Serious: Yes (Other)
  Sender: FDA-Public Use
  Company Number: CHNY2007GB00440

PATIENT
  Age: 54 Year
  Sex: Male

DRUGS (47)
  1. LACTULOSE [Suspect]
     Dosage: 10 ML,
  2. ACTRAPID HUMAN (INSULIN HUMAN) [Suspect]
     Dosage: INTRAVENOUS
     Route: 042
  3. ALFENTANIL [Suspect]
  4. AMOXICILLIN [Suspect]
     Dosage: 1G, TID, INTRAVENOUS
     Route: 042
  5. AQUASEPT (TRICLOSAN) [Suspect]
  6. BACTROBAN (MUPIROCIN) [Suspect]
  7. CALCIUM CHLORIDE [Suspect]
  8. CALCIUM GLUCONATE [Suspect]
     Dosage: 10 ML, INTRAVENOUS
     Route: 042
  9. CEFTRIAXONE [Suspect]
     Dosage: 2G, UNK; INTRAVENOUS
     Route: 042
  10. ENOXAPARIN SODIUM [Suspect]
     Dosage: 20 MG, QD; SUBCUTANEOUS
     Route: 058
  11. DOBUTAMINE [Suspect]
  12. FLUCONAZOLE [Suspect]
     Dosage: 200 MG, QD; INTRAVENOUS
     Route: 042
  13. FRAGMIN (DALTEPARIN SODIUM, HEPARIN-FRACTION, SODIUM SALT) [Suspect]
     Dosage: 2500 U,QD,UNK
  14. FUROSEMIDE [Suspect]
     Dosage: 20 MG, BID; INTRAVENOUS
     Route: 042
  15. FUROSEMIDE [Suspect]
     Dosage: 20 MG, QD; ORAL
     Route: 048
  16. HYDROCORTISONE [Suspect]
     Dosage: 100 MG, ONCE/SINGLE, UNK
  17. LANZOPRAZOLE [Suspect]
     Dosage: 30 MG,
  18. LORAZEPAM [Suspect]
  19. MAGNESIUM SULFATE [Suspect]
  20. NOREPINEPHRINE BITARTRATE [Suspect]
  21. OMEPRAZOLE [Suspect]
     Dosage: 40 MG, INTRAVENOUS
     Route: 042
  22. ACETAMINOPHEN [Suspect]
  23. PIRITON (CHLORPHENAMINE MALEATE) [Suspect]
     Dosage: 10 MG, QID; INTRAVENOUS
     Route: 042
  24. POTASSIUM CHLORIDE [Suspect]
  25. POTASSIUM PHOSPHATES [Suspect]
  26. PROPOFOL [Suspect]
  27. SALBUTAMOL [Suspect]
     Dosage: UNK, PRN, UNK
  28. POTASSIUM CHLORIDE [Suspect]
     Dosage: DF, TID; UNK
  29. SILVER SULFADIAZINE [Suspect]
     Dosage: UNK, UNK, TOPICAL
     Route: 061
  30. SIMVASTATIN [Suspect]
     Dosage: 40 MG, QD, UNK
  31. SODIUM BICARBONATE [Suspect]
     Dosage: 100 MG/H; INTRAVENOUS
     Route: 042
  32. SODIUM CHLORIDE [Suspect]
  33. THIAMINE [Suspect]
     Dosage: 100 MG, QD; ORAL
     Route: 048
  34. TINZAPARIN [Suspect]
     Dosage: 3500 UL, 1 DAY,
  35. VITAMIN K TAB [Suspect]
  36. AMOXICILLIN [Concomitant]
  37. ASPIRIN [Concomitant]
  38. ATROVENT [Concomitant]
  39. CIPROFLOXACIN [Concomitant]
  40. CO-AMOXICLAV (AMOXICILLIN, CLAVULANATE POTASSIUM) [Concomitant]
  41. ERYTHROMYCIN [Concomitant]
  42. METOCLOPRAMIDE [Concomitant]
  43. MIDODRINE [Concomitant]
  44. PANTOPRAZOLE SODIUM [Concomitant]
  45. PIPERACILLIN SODIUM AND TAZOBACTAM SODIUM [Concomitant]
  46. VANCOMYCIN [Concomitant]
  47. ZOPICLONE [Concomitant]

REACTIONS (3)
  - LOWER RESPIRATORY TRACT INFECTION [None]
  - PNEUMONIA [None]
  - TOXIC EPIDERMAL NECROLYSIS [None]
